FAERS Safety Report 9406104 (Version 4)
Quarter: 2014Q2

REPORT INFORMATION
  Report Type: Spontaneous
  Country: FR (occurrence: FR)
  Receive Date: 20130717
  Receipt Date: 20140616
  Transmission Date: 20141212
  Serious: Yes (Death, Hospitalization)
  Sender: FDA-Public Use
  Company Number: FR-BAXTER-2013BAX026650

PATIENT
  Age: 76 Year
  Sex: Male

DRUGS (36)
  1. ENDOXAN 2000 MG, LYOPHILISAT POUR SOLUTION INJECTABLE [Suspect]
     Indication: LYMPHOMA
     Route: 042
     Dates: start: 20120614
  2. ENDOXAN 2000 MG, LYOPHILISAT POUR SOLUTION INJECTABLE [Suspect]
     Route: 042
     Dates: start: 20120727
  3. ENDOXAN 2000 MG, LYOPHILISAT POUR SOLUTION INJECTABLE [Suspect]
     Route: 042
     Dates: start: 20121009
  4. ENDOXAN 2000 MG, LYOPHILISAT POUR SOLUTION INJECTABLE [Suspect]
     Route: 042
     Dates: start: 20121106
  5. ENDOXAN 2000 MG, LYOPHILISAT POUR SOLUTION INJECTABLE [Suspect]
     Route: 042
     Dates: start: 20121128
  6. ENDOXAN 2000 MG, LYOPHILISAT POUR SOLUTION INJECTABLE [Suspect]
     Route: 042
     Dates: start: 20130104
  7. ENDOXAN 2000 MG, LYOPHILISAT POUR SOLUTION INJECTABLE [Suspect]
     Route: 042
     Dates: start: 20130201, end: 20130201
  8. MABTHERA [Suspect]
     Indication: LYMPHOMA
     Route: 042
     Dates: start: 20120614
  9. MABTHERA [Suspect]
     Route: 042
     Dates: start: 20120706
  10. MABTHERA [Suspect]
     Route: 042
     Dates: start: 20120727
  11. MABTHERA [Suspect]
     Route: 042
     Dates: start: 20121009
  12. MABTHERA [Suspect]
     Route: 042
     Dates: start: 20121106
  13. MABTHERA [Suspect]
     Route: 042
     Dates: start: 20121128
  14. MABTHERA [Suspect]
     Route: 042
     Dates: start: 20130104
  15. MABTHERA [Suspect]
     Route: 042
     Dates: start: 20130201, end: 20130201
  16. ETOPOSIDE TEVA [Suspect]
     Indication: LYMPHOMA
     Route: 042
     Dates: start: 20120727
  17. ETOPOSIDE TEVA [Suspect]
     Route: 042
     Dates: start: 20121009
  18. ETOPOSIDE TEVA [Suspect]
     Route: 042
     Dates: start: 20121106
  19. ETOPOSIDE TEVA [Suspect]
     Route: 042
     Dates: start: 20121128
  20. ETOPOSIDE TEVA [Suspect]
     Route: 042
     Dates: start: 20120104
  21. ETOPOSIDE TEVA [Suspect]
     Route: 042
     Dates: start: 20130201, end: 20130201
  22. PREDNISOLONE [Suspect]
     Indication: LYMPHOMA
     Dosage: 40 MG X2
     Route: 048
     Dates: start: 20120727, end: 20130205
  23. METHYLPREDNISOLONE [Suspect]
     Indication: LYMPHOMA
     Route: 065
     Dates: start: 20120614
  24. METHYLPREDNISOLONE [Suspect]
     Route: 065
     Dates: start: 20120706
  25. METHYLPREDNISOLONE [Suspect]
     Route: 065
     Dates: start: 20120727
  26. METHYLPREDNISOLONE [Suspect]
     Route: 065
     Dates: start: 20121009
  27. METHYLPREDNISOLONE [Suspect]
     Route: 065
     Dates: start: 20121106
  28. METHYLPREDNISOLONE [Suspect]
     Route: 065
     Dates: start: 20121128
  29. METHYLPREDNISOLONE [Suspect]
     Route: 065
     Dates: start: 20130104
  30. METHYLPREDNISOLONE [Suspect]
     Route: 065
     Dates: start: 20130201, end: 20130201
  31. ACETYLSALICYLIC ACID [Concomitant]
     Indication: PRODUCT USED FOR UNKNOWN INDICATION
     Route: 048
  32. CALCIUM FOLINATE [Concomitant]
     Indication: PRODUCT USED FOR UNKNOWN INDICATION
     Route: 048
  33. ESOMEPRAZOLE [Concomitant]
     Indication: PRODUCT USED FOR UNKNOWN INDICATION
     Route: 048
  34. TRIMETHOPRIM/SULFAMETHOXAZOLE [Concomitant]
     Indication: PRODUCT USED FOR UNKNOWN INDICATION
     Route: 048
  35. ALFUZOSINE [Concomitant]
     Indication: PRODUCT USED FOR UNKNOWN INDICATION
     Route: 048
  36. TIMOFEROL [Concomitant]
     Indication: PRODUCT USED FOR UNKNOWN INDICATION
     Route: 048

REACTIONS (2)
  - Optic neuropathy [Not Recovered/Not Resolved]
  - Nervous system disorder [Fatal]
